FAERS Safety Report 8818651 (Version 1)
Quarter: 2012Q4

REPORT INFORMATION
  Report Type: Spontaneous
  Country: US (occurrence: None)
  Receive Date: 20121002
  Receipt Date: 20121002
  Transmission Date: 20130627
  Serious: Yes (Other)
  Sender: FDA-Public Use
  Company Number: 120433

PATIENT
  Age: 81 Year
  Sex: Female

DRUGS (1)
  1. SUPREP BOWEL PREP [Suspect]
     Indication: COLONOSCOPY
     Dosage: 1x 6oz bottle/1x/po
     Route: 048
     Dates: start: 20120923

REACTIONS (5)
  - Dizziness [None]
  - Hyperhidrosis [None]
  - Syncope [None]
  - Fall [None]
  - Vomiting [None]
